FAERS Safety Report 5478594-7 (Version None)
Quarter: 2007Q4

REPORT INFORMATION
  Report Type: 
  Country: None (occurrence: None)
  Receive Date: 20071005
  Receipt Date: 20070928
  Transmission Date: 20080405
  Serious: Yes (Hospitalization)
  Sender: FDA-Public Use
  Company Number: FR-ELI_LILLY_AND_COMPANY-FR200709000133

PATIENT
  Age: 77 Year
  Sex: Female
  Weight: 58 kg

DRUGS (6)
  1. FORTEO [Suspect]
     Indication: OSTEOPOROSIS
     Dosage: 20 UG, DAILY (1/D)
     Route: 058
     Dates: start: 20061121
  2. PLAVIX [Concomitant]
  3. STAGID [Concomitant]
     Indication: DIABETES MELLITUS
     Dosage: 2 D/F, DAILY (1/D)
     Route: 048
     Dates: start: 19900101
  4. AMARYL [Concomitant]
     Indication: DIABETES MELLITUS
     Dosage: 1 D/F, DAILY (1/D)
     Route: 048
     Dates: start: 19990101
  5. INEGY [Concomitant]
     Indication: HYPERCHOLESTEROLAEMIA
     Dosage: 1 D/F, DAILY (1/D)
     Route: 048
     Dates: start: 20070101
  6. ZYLORIC [Concomitant]
     Indication: HYPERURICAEMIA
     Dosage: 1 D/F, DAILY (1/D)
     Route: 048
     Dates: start: 19910101

REACTIONS (3)
  - DIVERTICULUM INTESTINAL [None]
  - HAEMOGLOBIN DECREASED [None]
  - MELAENA [None]
